FAERS Safety Report 18556429 (Version 1)
Quarter: 2020Q4

REPORT INFORMATION
  Report Type: Spontaneous
  Country: US (occurrence: US)
  Receive Date: 20201128
  Receipt Date: 20201128
  Transmission Date: 20210114
  Serious: Yes (Hospitalization, Other)
  Sender: FDA-Public Use
  Company Number: US-009507513-2011USA013971

PATIENT
  Age: 63 Year
  Sex: Female

DRUGS (13)
  1. LISINOPRIL HCT AAA [Suspect]
     Active Substance: HYDROCHLOROTHIAZIDE\LISINOPRIL
     Dosage: 20/25 MG DAILY
     Route: 048
  2. DIPHTHERIA TOXOID (+) PERTUSSIS ACELLULAR 2-COMPONENT VACCINE (+) TETA [Concomitant]
     Dates: start: 20111205
  3. LISINOPRIL HCT AAA [Suspect]
     Active Substance: HYDROCHLOROTHIAZIDE\LISINOPRIL
     Dosage: 10+12.5 DAILY
     Route: 048
  4. ASPIRIN. [Concomitant]
     Active Substance: ASPIRIN
     Dosage: 81 MILLIGRAM, QD
     Route: 048
  5. LISINOPRIL HCT AAA [Suspect]
     Active Substance: HYDROCHLOROTHIAZIDE\LISINOPRIL
     Dosage: 20/25 MG TWO TIMES PER DAY
     Route: 048
  6. DOCUSATE SODIUM. [Concomitant]
     Active Substance: DOCUSATE SODIUM
     Dosage: 200 MILLIGRAM, QD
     Route: 048
  7. COUMADIN [Concomitant]
     Active Substance: WARFARIN SODIUM
     Dosage: 7.5 MILLIGRAM, QOD
  8. INFLUENZA VIRUS VACCINE USP [Concomitant]
     Dates: start: 20111118
  9. NEXIUM [Suspect]
     Active Substance: ESOMEPRAZOLE MAGNESIUM
     Dosage: 40 MILLIGRAM, QD
     Route: 048
  10. LIPITOR [Concomitant]
     Active Substance: ATORVASTATIN CALCIUM
     Dosage: 20 MILLIGRAM, QOD
  11. PRINIVIL [Suspect]
     Active Substance: LISINOPRIL
     Dosage: 10 MILLIGRAM, QD
     Route: 048
  12. PLAVIX [Concomitant]
     Active Substance: CLOPIDOGREL BISULFATE
     Dosage: 75 MILLIGRAM, QD
     Route: 048
  13. PNEUMOVAX 23 [Concomitant]
     Active Substance: PNEUMOCOCCAL VACCINE, POLYVALENT 23
     Indication: PROPHYLAXIS
     Dates: start: 2004

REACTIONS (50)
  - Chromaturia [Unknown]
  - Dizziness [Recovered/Resolved]
  - Blood potassium decreased [Unknown]
  - Subcutaneous abscess [Unknown]
  - Upper respiratory tract infection [Unknown]
  - Arthropod bite [Unknown]
  - Arthralgia [Unknown]
  - Gastric ulcer [Unknown]
  - Hyperlipidaemia [Unknown]
  - Presyncope [Recovered/Resolved]
  - Rhinitis [Unknown]
  - Urine leukocyte esterase [Unknown]
  - Rhinorrhoea [Unknown]
  - Blood sodium decreased [Unknown]
  - Nausea [Recovered/Resolved]
  - Rash [Unknown]
  - Intentional product misuse [Unknown]
  - Clavicle fracture [Unknown]
  - Haemorrhoids [Unknown]
  - Vision blurred [Unknown]
  - Nasopharyngitis [Unknown]
  - Skin mass [Unknown]
  - Bursitis [Unknown]
  - Fatigue [Unknown]
  - Muscular weakness [Unknown]
  - Depression [Recovered/Resolved]
  - Cough [Unknown]
  - Cerebrovascular accident [Unknown]
  - Hypertension [Unknown]
  - Nasal congestion [Unknown]
  - Headache [Unknown]
  - Ear pain [Unknown]
  - Rotator cuff syndrome [Unknown]
  - Gastrooesophageal reflux disease [Unknown]
  - Diarrhoea [Recovered/Resolved]
  - Herpes zoster [Unknown]
  - Abdominal discomfort [Unknown]
  - Incontinence [Unknown]
  - Blood cholesterol increased [Unknown]
  - Arthritis [Unknown]
  - Bronchitis [Unknown]
  - Vomiting [Recovered/Resolved]
  - Wheezing [Unknown]
  - Pain in extremity [Unknown]
  - Rhinitis allergic [Unknown]
  - Carotid artery occlusion [Unknown]
  - Haematuria [Unknown]
  - Joint noise [Unknown]
  - Dermatitis contact [Recovering/Resolving]
  - Memory impairment [Unknown]

NARRATIVE: CASE EVENT DATE: 200808
